FAERS Safety Report 20626998 (Version 1)
Quarter: 2022Q1

REPORT INFORMATION
  Report Type: Spontaneous
  Country: JP (occurrence: JP)
  Receive Date: 20220323
  Receipt Date: 20220323
  Transmission Date: 20220423
  Serious: No
  Sender: FDA-Public Use
  Company Number: JP-GSKNCCC-Case-01446853_AE-55987

PATIENT

DRUGS (1)
  1. SOTROVIMAB [Suspect]
     Active Substance: SOTROVIMAB
     Dosage: ONE THIRD ADMINISTERED

REACTIONS (2)
  - Palpitations [Unknown]
  - Cough [Unknown]
